FAERS Safety Report 9236543 (Version 2)
Quarter: 2013Q2

REPORT INFORMATION
  Report Type: Spontaneous
  Country: JP (occurrence: JP)
  Receive Date: 20130417
  Receipt Date: 20130430
  Transmission Date: 20140414
  Serious: Yes (Other)
  Sender: FDA-Public Use
  Company Number: JP-PFIZER INC-2013118003

PATIENT
  Age: 88 Year
  Sex: Male

DRUGS (3)
  1. NORVASC OD [Suspect]
     Indication: HYPERTENSION
     Dosage: 2.5 MG, 1X/DAY (EVERY MORNING)
     Route: 048
     Dates: start: 201112
  2. NU LOTAN [Concomitant]
     Dosage: 50 MG, DAILY
     Route: 048
  3. GLACTIV [Concomitant]
     Dosage: 25 MG, DAILY
     Route: 048

REACTIONS (1)
  - Colon cancer [Recovered/Resolved]
